FAERS Safety Report 15346021 (Version 4)
Quarter: 2018Q3

REPORT INFORMATION
  Report Type: Spontaneous
  Country: DE (occurrence: DE)
  Receive Date: 20180904
  Receipt Date: 20180914
  Transmission Date: 20181010
  Serious: Yes (Hospitalization)
  Sender: FDA-Public Use
  Company Number: DE-TEVA-2018-DE-951086

PATIENT
  Age: 77 Year
  Sex: Female
  Weight: 85 kg

DRUGS (14)
  1. CAFFEINE. [Concomitant]
     Active Substance: CAFFEINE
     Indication: SCIATICA
     Dosage: 4500 MILLIGRAM DAILY;
     Route: 048
  2. L?THYROXIN HENNING [Concomitant]
     Active Substance: LEVOTHYROXINE SODIUM
     Indication: PRODUCT USED FOR UNKNOWN INDICATION
     Dosage: 75 MICROGRAM DAILY; 75 MUG, QD
     Route: 048
  3. PREDNISOLON RATIOPHARM [Concomitant]
     Active Substance: PREDNISOLONE
     Indication: PSORIATIC ARTHROPATHY
     Dosage: 5 MILLIGRAM DAILY; 5 MG, QD
     Route: 048
  4. FOLINIC ACID [Suspect]
     Active Substance: LEUCOVORIN
     Indication: COLORECTAL CANCER METASTATIC
     Route: 065
     Dates: start: 20180605
  5. FLUOROURACIL. [Suspect]
     Active Substance: FLUOROURACIL
     Route: 040
     Dates: start: 20180605
  6. PANITUMUMAB SOLUTION FOR INJECTION [Suspect]
     Active Substance: PANITUMUMAB
     Indication: COLORECTAL CANCER METASTATIC
     Dosage: 510 MG,
     Route: 042
     Dates: start: 20180605
  7. OXALIPLATIN. [Suspect]
     Active Substance: OXALIPLATIN
     Indication: COLORECTAL CANCER METASTATIC
     Dosage: 85 MG, UNK
     Route: 065
     Dates: start: 20180605
  8. PANTOPRAZOL RATIOPHARM [Concomitant]
     Active Substance: PANTOPRAZOLE SODIUM
     Indication: PRODUCT USED FOR UNKNOWN INDICATION
     Dosage: 40 MILLIGRAM DAILY;
     Route: 048
  9. BISOPROLOL?RATIOPHARM [Concomitant]
     Indication: HYPERTENSION
     Dosage: 5 MILLIGRAM DAILY; 5 MG, QD
     Route: 048
  10. FLUOROURACIL. [Suspect]
     Active Substance: FLUOROURACIL
     Indication: COLORECTAL CANCER METASTATIC
     Dosage: 2400 MG, UNK
     Route: 042
     Dates: start: 20180605
  11. TORASEMID?RATIOPHARM [Concomitant]
     Active Substance: TORSEMIDE
     Indication: PRODUCT USED FOR UNKNOWN INDICATION
     Dosage: 10 MILLIGRAM DAILY;
     Route: 048
  12. MIRTAZAPIN RATIOPHARM [Concomitant]
     Indication: PRODUCT USED FOR UNKNOWN INDICATION
     Dosage: 15 MILLIGRAM DAILY;
     Route: 048
  13. ERYPO [Concomitant]
     Indication: ANAEMIA
     Route: 058
  14. NOVALGIN [Concomitant]

REACTIONS (1)
  - Dehydration [Recovered/Resolved]

NARRATIVE: CASE EVENT DATE: 20180710
